FAERS Safety Report 4419114-5 (Version None)
Quarter: 2004Q3

REPORT INFORMATION
  Report Type: 
  Country: None (occurrence: None)
  Receive Date: 20040809
  Receipt Date: 20040115
  Transmission Date: 20050211
  Serious: No
  Sender: FDA-Public Use
  Company Number: US-GLAXOSMITHKLINE-A0493484A

PATIENT
  Age: 50 Year
  Sex: Female

DRUGS (4)
  1. PAXIL [Suspect]
     Indication: DEPRESSION
     Dosage: 40MG PER DAY
     Route: 048
  2. CLONAZEPAM [Concomitant]
  3. SOMA [Concomitant]
  4. LORTAB [Concomitant]

REACTIONS (2)
  - CRYING [None]
  - DEPRESSION [None]
